FAERS Safety Report 13676905 (Version 2)
Quarter: 2017Q3

REPORT INFORMATION
  Report Type: Spontaneous
  Country: CN (occurrence: CN)
  Receive Date: 20170622
  Receipt Date: 20170703
  Transmission Date: 20171127
  Serious: Yes (Other)
  Sender: FDA-Public Use
  Company Number: CN-SUN PHARMACEUTICAL INDUSTRIES LTD-2017RR-143304

PATIENT
  Age: 30 Year
  Sex: Male

DRUGS (2)
  1. TEMOZOLOMIDE. [Suspect]
     Active Substance: TEMOZOLOMIDE
     Indication: GLIOBLASTOMA
     Dosage: 160 MG (75 MG/M2/DAY) PER DAY FOR 42 DAYS
     Route: 065
  2. TEMOZOLOMIDE. [Suspect]
     Active Substance: TEMOZOLOMIDE
     Dosage: 150 TO 200 MG/M2 FOR 5 DAYS EVERY 28 DAYS FOR 12 CYCLES
     Route: 065

REACTIONS (2)
  - Drug effect incomplete [Unknown]
  - Nausea [Unknown]
